FAERS Safety Report 24617509 (Version 5)
Quarter: 2025Q1

REPORT INFORMATION
  Report Type: Report from Study
  Country: AU (occurrence: AU)
  Receive Date: 20241114
  Receipt Date: 20250224
  Transmission Date: 20250409
  Serious: No
  Sender: Unknown Manufacturer
  Company Number: AU-MIRUM PHARMACEUTICALS INTERNATIONAL B.V.-AU-MIR-23-00558

PATIENT

DRUGS (8)
  1. MARALIXIBAT CHLORIDE [Suspect]
     Active Substance: MARALIXIBAT CHLORIDE
     Indication: Alagille syndrome
     Dosage: 200 MICROGRAM/KILOGRAM, QD
     Route: 048
     Dates: start: 202106, end: 20210705
  2. MARALIXIBAT CHLORIDE [Suspect]
     Active Substance: MARALIXIBAT CHLORIDE
     Dosage: 400 MICROGRAM/KILOGRAM, QD
     Route: 048
     Dates: start: 2023
  3. MARALIXIBAT CHLORIDE [Suspect]
     Active Substance: MARALIXIBAT CHLORIDE
     Dosage: 250 MICROGRAM/KILOGRAM, QD
     Route: 048
     Dates: start: 20220412
  4. MARALIXIBAT CHLORIDE [Suspect]
     Active Substance: MARALIXIBAT CHLORIDE
     Dosage: 200 MICROGRAM/KILOGRAM, QD
     Route: 048
     Dates: start: 20220208, end: 20220412
  5. MARALIXIBAT CHLORIDE [Suspect]
     Active Substance: MARALIXIBAT CHLORIDE
     Dosage: 100 MICROGRAM/KILOGRAM, QD
     Route: 048
     Dates: start: 20211012, end: 20220208
  6. CHOLESTYRAMINE [Concomitant]
     Active Substance: CHOLESTYRAMINE
     Indication: Product used for unknown indication
     Dosage: 50 MILLIGRAM, TID
     Route: 065
  7. PHENERGAN [Concomitant]
     Active Substance: PROMETHAZINE HYDROCHLORIDE
     Indication: Product used for unknown indication
     Route: 065
  8. MELATONIN [Concomitant]
     Active Substance: MELATONIN
     Indication: Product used for unknown indication
     Route: 065

REACTIONS (1)
  - Liver function test abnormal [Recovered/Resolved]

NARRATIVE: CASE EVENT DATE: 20210705
